FAERS Safety Report 20967435 (Version 1)
Quarter: 2022Q2

REPORT INFORMATION
  Report Type: Spontaneous
  Country: CH (occurrence: None)
  Receive Date: 20220616
  Receipt Date: 20220616
  Transmission Date: 20220721
  Serious: Yes (Hospitalization)
  Sender: FDA-Public Use
  Company Number: 2022A150326

PATIENT
  Age: 7 Year
  Sex: Female
  Weight: 10 kg

DRUGS (22)
  1. NEXIUM [Suspect]
     Active Substance: ESOMEPRAZOLE MAGNESIUM
     Indication: Product used for unknown indication
     Dosage: 10 MILLIGRAM, 1/DAY
     Route: 048
     Dates: start: 20220318
  2. OMEPRAZOLE [Suspect]
     Active Substance: OMEPRAZOLE
     Indication: Product used for unknown indication
     Route: 048
     Dates: start: 20220311, end: 20220317
  3. VENOFER [Suspect]
     Active Substance: IRON SUCROSE
     Indication: Anaemia
     Dosage: 30 MG AM 15.03.2022 UND 50 MG AM 17.03.2022
     Route: 041
     Dates: start: 20220315, end: 20220315
  4. VENOFER [Suspect]
     Active Substance: IRON SUCROSE
     Indication: Anaemia
     Route: 041
     Dates: start: 20220317, end: 20220317
  5. ACETAMINOPHEN [Suspect]
     Active Substance: ACETAMINOPHEN
     Indication: Product used for unknown indication
     Dosage: 150 MILLIGRAM, 4/DAY
     Route: 048
     Dates: start: 20220311, end: 20220319
  6. METAMIZOLE [Suspect]
     Active Substance: METAMIZOLE
     Indication: Product used for unknown indication
     Dosage: 150 MILLIGRAM, 1/DAY
     Route: 048
     Dates: start: 20220315, end: 20220315
  7. METAMIZOLE [Suspect]
     Active Substance: METAMIZOLE
     Indication: Product used for unknown indication
     Dosage: 150 MILLIGRAM, 3/DAY
     Route: 048
     Dates: start: 20220317, end: 20220317
  8. METAMIZOLE [Suspect]
     Active Substance: METAMIZOLE
     Indication: Product used for unknown indication
     Route: 041
     Dates: start: 20220319
  9. LASIX [Suspect]
     Active Substance: FUROSEMIDE
     Indication: Product used for unknown indication
     Dosage: 2 MG, BID
     Route: 048
     Dates: start: 20220316
  10. ROCEPHIN [Suspect]
     Active Substance: CEFTRIAXONE SODIUM
     Indication: Product used for unknown indication
     Dosage: 750 MILLIGRAM, 1/DAY
     Route: 041
     Dates: start: 20220310, end: 20220312
  11. ACTIVATED CHARCOAL\DIMETHICONE [Concomitant]
     Active Substance: ACTIVATED CHARCOAL\DIMETHICONE
     Indication: Product used for unknown indication
     Dosage: 41.2 MILLIGRAM, 4/DAY
     Route: 048
     Dates: start: 20220311, end: 20220319
  12. ACTIVATED CHARCOAL\DIMETHICONE [Concomitant]
     Active Substance: ACTIVATED CHARCOAL\DIMETHICONE
     Indication: Flatulence
     Dosage: 41.2 MILLIGRAM, 4/DAY
     Route: 048
     Dates: start: 20220311, end: 20220319
  13. CALCIUM CARBONATE [Concomitant]
     Active Substance: CALCIUM CARBONATE
     Indication: Product used for unknown indication
     Route: 048
     Dates: start: 20220312, end: 20220313
  14. MALTOFER [Concomitant]
     Indication: Product used for unknown indication
     Dosage: 15 MILLIGRAM, 2/DAY
     Route: 048
     Dates: start: 20220311, end: 20220315
  15. MALTOFER [Concomitant]
     Indication: Anaemia
     Dosage: 15 MILLIGRAM, 2/DAY
     Route: 048
     Dates: start: 20220311, end: 20220315
  16. NATRIUM BICARBONATE [Concomitant]
     Indication: Product used for unknown indication
     Dosage: 5 MILLIMOLE, 3/DAY
     Route: 048
     Dates: start: 20220311, end: 20220314
  17. VITAMINS [Concomitant]
     Active Substance: VITAMINS
     Indication: Product used for unknown indication
     Dosage: 10 MILLILITRE, 1/DAY
     Route: 041
     Dates: start: 20220316
  18. EPREX [Concomitant]
     Active Substance: ERYTHROPOIETIN
     Indication: Product used for unknown indication
     Route: 058
     Dates: start: 20220314, end: 20220316
  19. POTASSIUM CITRATE [Concomitant]
     Active Substance: POTASSIUM CITRATE
     Indication: Hypokalaemia
     Route: 065
  20. POTASSIUM CITRATE [Concomitant]
     Active Substance: POTASSIUM CITRATE
     Indication: Acidosis
     Route: 065
  21. POTASSIUM CITRATE [Concomitant]
     Active Substance: POTASSIUM CITRATE
     Indication: Hypokalaemia
     Route: 048
     Dates: start: 20220314, end: 20220316
  22. POTASSIUM CITRATE [Concomitant]
     Active Substance: POTASSIUM CITRATE
     Indication: Acidosis
     Route: 048
     Dates: start: 20220314, end: 20220316

REACTIONS (4)
  - Hypokalaemia [Recovering/Resolving]
  - Acidosis [Recovering/Resolving]
  - Hepatic enzyme increased [Recovering/Resolving]
  - Flatulence [Recovering/Resolving]
